FAERS Safety Report 8595774-2 (Version None)
Quarter: 2012Q3

REPORT INFORMATION
  Report Type: 
  Country: None (occurrence: None)
  Receive Date: 20120815
  Receipt Date: 20120809
  Transmission Date: 20120928
  Serious: Yes (Hospitalization, Other)
  Sender: FDA-Public Use
  Company Number: US-ELI_LILLY_AND_COMPANY-US201208003592

PATIENT
  Age: 47 Year
  Sex: Male

DRUGS (2)
  1. LANTUS [Concomitant]
     Indication: DIABETES MELLITUS
     Dosage: UNK, UNKNOWN
  2. HUMALOG [Suspect]
     Indication: DIABETES MELLITUS
     Dosage: 20 U, QD

REACTIONS (2)
  - RENAL TRANSPLANT [None]
  - MEDICATION ERROR [None]
